FAERS Safety Report 21591851 (Version 2)
Quarter: 2023Q2

REPORT INFORMATION
  Report Type: Spontaneous
  Country: JP (occurrence: JP)
  Receive Date: 20221114
  Receipt Date: 20230421
  Transmission Date: 20230722
  Serious: Yes (Other)
  Sender: FDA-Public Use
  Company Number: JP-GUERBETG_JAPAN-JP-20220187

PATIENT
  Age: 42 Year
  Sex: Female

DRUGS (5)
  1. LIPIODOL [Suspect]
     Active Substance: ETHIODIZED OIL
     Indication: Therapeutic embolisation
     Dosage: 0.3 ML OF NBCA MIXED WITH LIPIODOL IN A 1:3 RATIO
     Route: 013
  2. LIPIODOL [Suspect]
     Active Substance: ETHIODIZED OIL
     Dosage: 0.2 ML OF NBCA MIXED WITH LIPIODOL IN A 1:2 RATIO
     Route: 013
  3. ENBUCRILATE [Concomitant]
     Active Substance: ENBUCRILATE
     Indication: Therapeutic embolisation
     Dosage: 0.3 ML OF N-BUTYL-2-CYANOACRYLATE (NBCA) MIXED WITH LIPIODOL IN A 1:3 RATIO
     Route: 065
  4. ENBUCRILATE [Concomitant]
     Active Substance: ENBUCRILATE
     Dosage: 0.2 ML OF NBCA MIXED WITH LIPIODOL IN A 1:2 RATIO
     Route: 065
  5. gelatin sponge [Concomitant]
     Indication: Therapeutic embolisation
     Dosage: 0.2 ML OF NBCA MIXED WITH LIPIODOL IN A 1:2 RATIO AND A PIECE OF GELATIN SPONGE
     Route: 013

REACTIONS (1)
  - Abdominal compartment syndrome [Recovered/Resolved]
